FAERS Safety Report 20104482 (Version 1)
Quarter: 2021Q4

REPORT INFORMATION
  Report Type: Spontaneous
  Country: US (occurrence: None)
  Receive Date: 20211123
  Receipt Date: 20211123
  Transmission Date: 20220304
  Serious: No
  Sender: FDA-Public Use
  Company Number: None

PATIENT

DRUGS (2)
  1. HEPARIN SODIUM [Suspect]
     Active Substance: HEPARIN SODIUM
  2. CALCIUM CHLORIDE [Suspect]
     Active Substance: CALCIUM CHLORIDE

REACTIONS (3)
  - Wrong product administered [None]
  - Contraindicated product administered [None]
  - Drug interaction [None]
